FAERS Safety Report 6272943-8 (Version None)
Quarter: 2009Q3

REPORT INFORMATION
  Report Type: 
  Country: None (occurrence: None)
  Receive Date: 20090720
  Receipt Date: 20090711
  Transmission Date: 20100115
  Serious: Yes (Other)
  Sender: FDA-Public Use
  Company Number: US-RB-017902-09

PATIENT
  Age: 52 Year
  Sex: Female

DRUGS (7)
  1. SUBOXONE [Suspect]
     Indication: DRUG DEPENDENCE
     Route: 060
     Dates: start: 20080401, end: 20090627
  2. SUBOXONE [Suspect]
     Indication: PAIN
     Route: 060
     Dates: start: 20090101, end: 20090707
  3. XANAX [Concomitant]
     Indication: ANXIETY
     Route: 065
  4. LAMICTAL [Concomitant]
     Indication: BIPOLAR DISORDER
     Dosage: DOSING INFORMATION UNKNOWN.
     Route: 065
  5. SEROQUEL [Concomitant]
     Indication: AFFECTIVE DISORDER
     Dosage: DOSING INFORMATION UNKNOWN.
     Route: 065
  6. PROVIGIL [Concomitant]
     Indication: ASTHENIA
     Dosage: DOSING INFORMATION UNKNOWN.
     Route: 065
  7. EFFEXOR XR [Concomitant]
     Indication: DEPRESSION
     Dosage: CONSUMER TAKES 1 TABLET (UNIT DOSE UNKNOWN) TWICE DAILY
     Route: 065

REACTIONS (12)
  - AGITATION [None]
  - BIPOLAR DISORDER [None]
  - CARDIAC DISORDER [None]
  - DYSPNOEA [None]
  - DYSURIA [None]
  - FALL [None]
  - FEELING ABNORMAL [None]
  - HYPOAESTHESIA [None]
  - MEMORY IMPAIRMENT [None]
  - MIGRAINE [None]
  - OEDEMA PERIPHERAL [None]
  - SUICIDAL IDEATION [None]
